FAERS Safety Report 19025198 (Version 2)
Quarter: 2021Q1

REPORT INFORMATION
  Report Type: Report from Study
  Country: FR (occurrence: FR)
  Receive Date: 20210318
  Receipt Date: 20210324
  Transmission Date: 20210420
  Serious: Yes (Death)
  Sender: FDA-Public Use
  Company Number: NVSC2021FR061616

PATIENT
  Age: 53 Year
  Sex: Male
  Weight: 93.8 kg

DRUGS (4)
  1. RIBOCICLIB. [Suspect]
     Active Substance: RIBOCICLIB
     Indication: NEOPLASM
     Dosage: 200 MG,DAILY 2 WEEKS ON/1 WEEK OFF,
     Route: 048
     Dates: start: 20210209, end: 20210223
  2. HDM201 [Suspect]
     Active Substance: SIREMADLIN
     Indication: NEOPLASM
     Dosage: 120 MG, Q3W
     Route: 048
     Dates: start: 20210209
  3. GEMCITABINE. [Concomitant]
     Active Substance: GEMCITABINE
     Indication: CHEMOTHERAPY
     Dosage: UNK
     Route: 065
     Dates: start: 20210302
  4. PRIMPERAN [Concomitant]
     Active Substance: METOCLOPRAMIDE HYDROCHLORIDE
     Indication: NAUSEA
     Dosage: 10 MG
     Route: 048
     Dates: start: 20210209

REACTIONS (1)
  - Respiratory failure [Fatal]

NARRATIVE: CASE EVENT DATE: 20210307
